FAERS Safety Report 18318185 (Version 1)
Quarter: 2020Q3

REPORT INFORMATION
  Report Type: Spontaneous
  Country: US (occurrence: US)
  Receive Date: 20200925
  Receipt Date: 20200925
  Transmission Date: 20201103
  Serious: No
  Sender: FDA-Public Use
  Company Number: None

PATIENT
  Age: 29 Year
  Sex: Female
  Weight: 72 kg

DRUGS (3)
  1. DEXAMETHASONE SODIUM PHOSPHATE. [Suspect]
     Active Substance: DEXAMETHASONE SODIUM PHOSPHATE
     Indication: MIGRAINE
     Dates: start: 20200913, end: 20200913
  2. PRENATAL [Concomitant]
     Active Substance: VITAMINS
  3. DEXAMETHASONE SODIUM PHOSPHATE. [Suspect]
     Active Substance: DEXAMETHASONE SODIUM PHOSPHATE
     Indication: NAUSEA
     Dates: start: 20200913, end: 20200913

REACTIONS (11)
  - Gastrointestinal disorder [None]
  - Oral candidiasis [None]
  - Headache [None]
  - Chest pain [None]
  - Heart rate increased [None]
  - Night sweats [None]
  - Cardiac flutter [None]
  - Insomnia [None]
  - Paraesthesia [None]
  - Nausea [None]
  - Palpitations [None]

NARRATIVE: CASE EVENT DATE: 20200919
